FAERS Safety Report 20063904 (Version 1)
Quarter: 2021Q4

REPORT INFORMATION
  Report Type: Spontaneous
  Country: US (occurrence: None)
  Receive Date: 20211111
  Receipt Date: 20211111
  Transmission Date: 20220303
  Serious: No
  Sender: FDA-Public Use
  Company Number: None

PATIENT
  Age: 58 Year
  Sex: Male

DRUGS (1)
  1. ENBREL [Suspect]
     Active Substance: ETANERCEPT
     Indication: Rheumatoid arthritis
     Dosage: OTHER FREQUENCY : 1PEN EVERY 7 DAYS ;?
     Route: 058
     Dates: start: 20200306

REACTIONS (2)
  - Therapeutic product effect decreased [None]
  - Arthralgia [None]

NARRATIVE: CASE EVENT DATE: 20210901
